FAERS Safety Report 9609349 (Version 1)
Quarter: 2013Q4

REPORT INFORMATION
  Report Type: Spontaneous
  Country: JP (occurrence: JP)
  Receive Date: 20131009
  Receipt Date: 20131009
  Transmission Date: 20140711
  Serious: Yes (Other)
  Sender: FDA-Public Use
  Company Number: JP-JNJFOC-20131000747

PATIENT
  Age: 24 Year
  Sex: Male

DRUGS (5)
  1. INFLIXIMAB, RECOMBINANT [Suspect]
     Indication: CROHN^S DISEASE
     Route: 042
     Dates: start: 200304, end: 2003
  2. INFLIXIMAB, RECOMBINANT [Suspect]
     Indication: CROHN^S DISEASE
     Route: 042
     Dates: start: 2008
  3. INFLIXIMAB, RECOMBINANT [Suspect]
     Indication: CROHN^S DISEASE
     Route: 042
     Dates: start: 2003, end: 2008
  4. AZATHIOPRINE [Suspect]
     Indication: CROHN^S DISEASE
     Route: 065
  5. AZATHIOPRINE [Suspect]
     Indication: CROHN^S DISEASE
     Route: 065
     Dates: start: 200304

REACTIONS (3)
  - Acute myelomonocytic leukaemia [Recovering/Resolving]
  - Anal abscess [Unknown]
  - Therapeutic response decreased [Unknown]
